FAERS Safety Report 17435269 (Version 1)
Quarter: 2020Q1

REPORT INFORMATION
  Report Type: Spontaneous
  Country: US (occurrence: US)
  Receive Date: 20200203
  Receipt Date: 20200203
  Transmission Date: 20200409
  Serious: No
  Sender: FDA-Public Use
  Company Number: None

PATIENT
  Age: 75 Year
  Sex: Male

DRUGS (1)
  1. HYDROXYZINE (HYDROXYZINE HCL 25MG CAP) [Suspect]
     Active Substance: HYDROXYZINE HYDROCHLORIDE
     Indication: ANXIETY
     Route: 048
     Dates: start: 20190910, end: 20190910

REACTIONS (3)
  - Somnolence [None]
  - Respiratory failure [None]
  - Encephalopathy [None]

NARRATIVE: CASE EVENT DATE: 20190911
